FAERS Safety Report 25304754 (Version 1)
Quarter: 2025Q2

REPORT INFORMATION
  Report Type: Spontaneous
  Country: CH (occurrence: CH)
  Receive Date: 20250513
  Receipt Date: 20250513
  Transmission Date: 20250717
  Serious: Yes (Death)
  Sender: ROCHE
  Company Number: CH-ROCHE-10000280943

PATIENT

DRUGS (1)
  1. TECENTRIQ [Suspect]
     Active Substance: ATEZOLIZUMAB
     Indication: Transitional cell carcinoma metastatic
     Route: 042

REACTIONS (2)
  - Death [Fatal]
  - Therapy non-responder [Unknown]
